FAERS Safety Report 13662714 (Version 1)
Quarter: 2017Q2

REPORT INFORMATION
  Report Type: Spontaneous
  Country: US (occurrence: US)
  Receive Date: 20170616
  Receipt Date: 20170616
  Transmission Date: 20170830
  Serious: Yes (Life-Threatening, Disabling, Other)
  Sender: FDA-Public Use
  Company Number: None

PATIENT
  Age: 21 Year
  Sex: Male
  Weight: 74.25 kg

DRUGS (1)
  1. CIPROFLOXACIN. [Suspect]
     Active Substance: CIPROFLOXACIN
     Route: 048

REACTIONS (11)
  - Visual impairment [None]
  - Pain [None]
  - Tooth disorder [None]
  - Tinnitus [None]
  - Renal disorder [None]
  - Palpitations [None]
  - Myalgia [None]
  - Arthralgia [None]
  - Tendon disorder [None]
  - Muscle tightness [None]
  - Tendon pain [None]

NARRATIVE: CASE EVENT DATE: 20160514
